FAERS Safety Report 15285243 (Version 1)
Quarter: 2018Q3

REPORT INFORMATION
  Report Type: Spontaneous
  Country: US (occurrence: US)
  Receive Date: 20180816
  Receipt Date: 20180816
  Transmission Date: 20181010
  Serious: No
  Sender: FDA-Public Use
  Company Number: PHEH2018US032774

PATIENT
  Age: 3 Year
  Sex: Male
  Weight: 14.96 kg

DRUGS (3)
  1. ZARXIO [Suspect]
     Active Substance: FILGRASTIM-SNDZ
     Indication: NEUTROPHIL COUNT DECREASED
     Dosage: 75 UG, QW3 (MON, WED AND FRIDAY)
     Route: 058
     Dates: start: 20180509
  2. ZARXIO [Suspect]
     Active Substance: FILGRASTIM-SNDZ
     Indication: WHITE BLOOD CELL COUNT DECREASED
     Dosage: 300 UG, UNK
     Route: 058
     Dates: start: 20180507, end: 20180509
  3. ZARXIO [Suspect]
     Active Substance: FILGRASTIM-SNDZ
     Dosage: 42 UG, UNK
     Route: 058

REACTIONS (3)
  - White blood cell count increased [Recovered/Resolved]
  - Incorrect dose administered [Unknown]
  - Neutrophil count increased [Recovered/Resolved]

NARRATIVE: CASE EVENT DATE: 20180509
